FAERS Safety Report 9718475 (Version 1)
Quarter: 2013Q4

REPORT INFORMATION
  Report Type: Spontaneous
  Country: US (occurrence: None)
  Receive Date: 20131125
  Receipt Date: 20131125
  Transmission Date: 20140711
  Serious: Yes (Life-Threatening, Hospitalization)
  Sender: FDA-Public Use
  Company Number: 2013P1021128

PATIENT
  Sex: 0

DRUGS (6)
  1. OXYCODONE [Suspect]
     Dosage: X1;PO
     Route: 048
  2. ACETAMINOPHEN [Suspect]
     Dosage: X1;PO
     Route: 048
  3. WARFARIN [Suspect]
     Dosage: 60 TABLETS;X1;PO
     Route: 048
  4. IBUPROFEN [Suspect]
     Dosage: X1;PO
     Route: 048
  5. NAPROXEN [Suspect]
     Dosage: X1;PO
     Route: 048
  6. NORTRIPTYLINE [Suspect]
     Dosage: X1;PO
     Route: 048

REACTIONS (10)
  - Suicide attempt [None]
  - Hypertension [None]
  - Heart rate increased [None]
  - Respiratory rate decreased [None]
  - Sedation [None]
  - Miosis [None]
  - Tachycardia [None]
  - Gastrointestinal sounds abnormal [None]
  - Overdose [None]
  - International normalised ratio increased [None]
